FAERS Safety Report 6087177-X (Version None)
Quarter: 2009Q1

REPORT INFORMATION
  Report Type: 
  Country: None (occurrence: None)
  Receive Date: 20090223
  Receipt Date: 20090218
  Transmission Date: 20090719
  Serious: Yes (Other)
  Sender: FDA-Public Use
  Company Number: US-MERCK-0902USA03016

PATIENT
  Age: 73 Year
  Sex: Male

DRUGS (6)
  1. DECADRON [Suspect]
     Route: 048
  2. NPLATE [Suspect]
     Indication: IDIOPATHIC THROMBOCYTOPENIC PURPURA
     Route: 058
     Dates: start: 20081031, end: 20081231
  3. INSULIN GLARGINE [Concomitant]
     Route: 058
  4. COZAAR [Concomitant]
     Route: 048
  5. SIMVASTATIN [Concomitant]
     Route: 065
  6. NOVOLOG [Concomitant]
     Route: 058

REACTIONS (5)
  - BLOOD GLUCOSE INCREASED [None]
  - CATARACT [None]
  - DRUG INEFFECTIVE [None]
  - PLATELET COUNT [None]
  - PLATELET COUNT DECREASED [None]
